FAERS Safety Report 10578441 (Version 1)
Quarter: 2014Q4

REPORT INFORMATION
  Report Type: Spontaneous
  Country: US (occurrence: US)
  Receive Date: 20141112
  Receipt Date: 20141112
  Transmission Date: 20150529
  Serious: Yes (Other)
  Sender: FDA-Public Use
  Company Number: US-AMGEN-USASP2014085716

PATIENT
  Age: 53 Year
  Sex: Female

DRUGS (1)
  1. PROLIA [Suspect]
     Active Substance: DENOSUMAB
     Indication: PRODUCT USED FOR UNKNOWN INDICATION
     Route: 065

REACTIONS (12)
  - Hypoaesthesia [Unknown]
  - Feeling drunk [Unknown]
  - Impaired work ability [Unknown]
  - Visual impairment [Unknown]
  - Arthralgia [Unknown]
  - Neck pain [Unknown]
  - Dizziness [Unknown]
  - Blood pressure abnormal [Unknown]
  - Impaired driving ability [Unknown]
  - Hypoaesthesia oral [Unknown]
  - Paraesthesia [Unknown]
  - Vertigo [Unknown]

NARRATIVE: CASE EVENT DATE: 2014
